FAERS Safety Report 7259066-6 (Version None)
Quarter: 2011Q1

REPORT INFORMATION
  Report Type: 
  Country: None (occurrence: None)
  Receive Date: 20110129
  Receipt Date: 20100810
  Transmission Date: 20110831
  Serious: No
  Sender: FDA-Public Use
  Company Number: US-ABBOTT-10P-163-0663498-00

PATIENT
  Sex: Male
  Weight: 113.5 kg

DRUGS (2)
  1. HUMIRA [Suspect]
     Indication: PSORIATIC ARTHROPATHY
     Route: 058
     Dates: start: 20100101
  2. UNKNOWN TOPICAL MEDICATION [Concomitant]
     Indication: PSORIATIC ARTHROPATHY
     Route: 061

REACTIONS (2)
  - ARTHRALGIA [None]
  - INCORRECT STORAGE OF DRUG [None]
